FAERS Safety Report 6455799-X (Version None)
Quarter: 2009Q4

REPORT INFORMATION
  Report Type: 
  Country: None (occurrence: None)
  Receive Date: 20091125
  Receipt Date: 20090821
  Transmission Date: 20100525
  Serious: No
  Sender: FDA-Public Use
  Company Number: US-ABBOTT-09P-163-0593911-00

PATIENT
  Sex: Female

DRUGS (9)
  1. SIMCOR [Suspect]
     Indication: BLOOD CHOLESTEROL INCREASED
     Dosage: 500/20 MG PER TAB
     Dates: start: 20090731
  2. SIMCOR [Suspect]
  3. SIMCOR [Suspect]
     Dosage: 500/20 MG PER TAB
  4. PRINIVIL [Concomitant]
     Indication: HYPERTENSION
  5. HYDROCHLOROTHIAZIDE [Concomitant]
     Indication: HYPERTENSION
  6. KLOR-CON [Concomitant]
     Indication: BLOOD POTASSIUM ABNORMAL
  7. MULTI-VITAMINS [Concomitant]
     Indication: DRUG USE FOR UNKNOWN INDICATION
  8. FISH OIL [Concomitant]
     Indication: DRUG USE FOR UNKNOWN INDICATION
  9. VITAMIN E [Concomitant]
     Indication: DRUG USE FOR UNKNOWN INDICATION

REACTIONS (2)
  - LIP SWELLING [None]
  - LOCAL SWELLING [None]
